FAERS Safety Report 4304821-5 (Version None)
Quarter: 2004Q1

REPORT INFORMATION
  Report Type: 
  Country: None (occurrence: None)
  Receive Date: 20040226
  Receipt Date: 20031125
  Transmission Date: 20041129
  Serious: Yes (Life-Threatening, Hospitalization, Disabling, Other)
  Sender: FDA-Public Use
  Company Number: PHEH2003US10891

PATIENT
  Age: 48 Year
  Sex: Male

DRUGS (6)
  1. CLOZARIL [Suspect]
     Indication: SCHIZOPHRENIA
     Dosage: 500 MG, QD
     Route: 048
     Dates: start: 19910401, end: 20031030
  2. PAXIL [Concomitant]
  3. DEPAKOTE [Concomitant]
  4. BUSPAR [Concomitant]
  5. AMBIEN [Concomitant]
  6. NEXIUM [Concomitant]

REACTIONS (12)
  - CARDIAC TAMPONADE [None]
  - CHEST PAIN [None]
  - CONSTIPATION [None]
  - DYSPNOEA [None]
  - DYSPNOEA EXERTIONAL [None]
  - HYPERTHYROIDISM [None]
  - PERICARDIAL DRAINAGE [None]
  - PERICARDIAL EFFUSION [None]
  - PERICARDIAL EXCISION [None]
  - PERICARDITIS [None]
  - PLEURAL EFFUSION [None]
  - POLYSEROSITIS [None]
